FAERS Safety Report 21742345 (Version 1)
Quarter: 2022Q4

REPORT INFORMATION
  Report Type: Spontaneous
  Country: NO (occurrence: NO)
  Receive Date: 20221216
  Receipt Date: 20221216
  Transmission Date: 20230113
  Serious: Yes (Hospitalization)
  Sender: FDA-Public Use
  Company Number: NO-NORGINE LIMITED-NOR202203807

PATIENT
  Age: 39 Year
  Sex: Female
  Weight: 56 kg

DRUGS (1)
  1. PLENVU [Suspect]
     Active Substance: ASCORBIC ACID\POLYETHYLENE GLYCOL 3350\POTASSIUM CHLORIDE\SODIUM ASCORBATE\SODIUM CHLORIDE\SODIUM SU
     Indication: Bowel preparation
     Dosage: ADDITIONAL INFORMATION- A06AD65 - MACROGOL COMBINATIONS
     Route: 065
     Dates: start: 20221107, end: 20221107

REACTIONS (2)
  - Ileus [Recovered/Resolved]
  - Abdominal pain [Unknown]

NARRATIVE: CASE EVENT DATE: 20221108
